FAERS Safety Report 8340489-9 (Version None)
Quarter: 2012Q2

REPORT INFORMATION
  Report Type: 
  Country: None (occurrence: None)
  Receive Date: 20120507
  Receipt Date: 20090716
  Transmission Date: 20120825
  Serious: No
  Sender: FDA-Public Use
  Company Number: US-TEVA-2009008613

PATIENT
  Sex: Female
  Weight: 73.548 kg

DRUGS (3)
  1. POLYGAM S/D [Concomitant]
  2. BENADRYL [Concomitant]
  3. TREANDA [Suspect]
     Indication: CHRONIC LYMPHOCYTIC LEUKAEMIA
     Route: 042
     Dates: start: 20090713

REACTIONS (6)
  - NAUSEA [None]
  - DYSPNOEA [None]
  - DIARRHOEA [None]
  - SWELLING FACE [None]
  - VOMITING [None]
  - DIZZINESS [None]
